FAERS Safety Report 25068065 (Version 1)
Quarter: 2025Q1

REPORT INFORMATION
  Report Type: Spontaneous
  Country: FR (occurrence: FR)
  Receive Date: 20250312
  Receipt Date: 20250312
  Transmission Date: 20250409
  Serious: Yes (Death, Life-Threatening)
  Sender: ACCORD
  Company Number: None

PATIENT
  Age: 68 Year
  Sex: Male
  Weight: 110 kg

DRUGS (33)
  1. ATORVASTATIN [Suspect]
     Active Substance: ATORVASTATIN
     Indication: Dyslipidaemia
     Dates: start: 2024, end: 20241230
  2. ATRACURIUM [Concomitant]
     Active Substance: ATRACURIUM
     Dates: start: 20241202, end: 20241212
  3. ASPIRIN [Concomitant]
     Active Substance: ASPIRIN
     Dates: start: 20241202, end: 20250105
  4. ACUPAN [Concomitant]
     Active Substance: NEFOPAM HYDROCHLORIDE
     Dates: start: 20241213, end: 20241222
  5. CEFEPIME [Concomitant]
     Active Substance: CEFEPIME HYDROCHLORIDE
     Dates: start: 20241217, end: 20241219
  6. CEFOTAXIME SODIUM [Concomitant]
     Active Substance: CEFOTAXIME SODIUM
     Dates: start: 20241205, end: 20241216
  7. HEPARIN CALCIUM [Concomitant]
     Active Substance: HEPARIN CALCIUM
     Dates: start: 20241202, end: 20250105
  8. ERYTHROMYCIN [Concomitant]
     Active Substance: ERYTHROMYCIN
     Dates: start: 20241231, end: 20250103
  9. FUROSEMIDE [Concomitant]
     Active Substance: FUROSEMIDE
     Dates: start: 20241216, end: 20241217
  10. HYDROCORTISONE [Concomitant]
     Active Substance: HYDROCORTISONE
     Dates: start: 20241202, end: 20241210
  11. LEVOTHYROXINE SODIUM [Concomitant]
     Active Substance: LEVOTHYROXINE SODIUM
     Dates: start: 20241202, end: 20250105
  12. LINEZOLID [Concomitant]
     Active Substance: LINEZOLID
     Dates: start: 20241221, end: 20241229
  13. POLYETHYLENE GLYCOL 4000 [Concomitant]
     Active Substance: POLYETHYLENE GLYCOL 4000
     Dates: start: 20241207, end: 20241217
  14. MEROPENEM [Concomitant]
     Active Substance: MEROPENEM
     Dates: start: 20241222, end: 20241229
  15. NOREPINEPHRINE BITARTRATE [Concomitant]
     Active Substance: NOREPINEPHRINE BITARTRATE
     Dates: start: 20241202, end: 20241211
  16. ONDANSETRON [Concomitant]
     Active Substance: ONDANSETRON
     Dates: start: 20241230, end: 20250103
  17. PANTOPRAZOLE [Concomitant]
     Active Substance: PANTOPRAZOLE
     Dates: start: 20241202, end: 20241212
  18. PHLOROGLUCINOL [Concomitant]
     Active Substance: PHLOROGLUCINOL
     Dates: start: 20241211, end: 20241214
  19. PROPOFOL [Concomitant]
     Active Substance: PROPOFOL
     Dates: start: 20241202, end: 20241203
  20. ACETAMINOPHEN [Concomitant]
     Active Substance: ACETAMINOPHEN
     Dates: start: 20241213, end: 20250106
  21. PIPERACILLIN AND TAZOBACTAM [Concomitant]
     Active Substance: PIPERACILLIN SODIUM\TAZOBACTAM SODIUM
     Dates: start: 20241202, end: 20241205
  22. SUFENTANIL [Concomitant]
     Active Substance: SUFENTANIL
     Dates: start: 20241202, end: 20241207
  23. VASOPRESSIN [Concomitant]
     Active Substance: VASOPRESSIN
     Dates: start: 20241202, end: 20241205
  24. URAPIDIL [Concomitant]
     Active Substance: URAPIDIL
     Dates: start: 20241211, end: 20241214
  25. PANTOPRAZOLE [Concomitant]
     Active Substance: PANTOPRAZOLE
     Dates: start: 20250103, end: 20250105
  26. ACUPAN [Concomitant]
     Active Substance: NEFOPAM HYDROCHLORIDE
     Dates: start: 20250102, end: 20250105
  27. NOREPINEPHRINE BITARTRATE [Concomitant]
     Active Substance: NOREPINEPHRINE BITARTRATE
     Dates: start: 20241212, end: 20250105
  28. HYDROCORTISONE [Concomitant]
     Active Substance: HYDROCORTISONE
     Dates: start: 20241225, end: 20250105
  29. PROPOFOL [Concomitant]
     Active Substance: PROPOFOL
     Dates: start: 20241208, end: 20241211
  30. PROPOFOL [Concomitant]
     Active Substance: PROPOFOL
     Dates: start: 20241214, end: 20250106
  31. SUFENTANIL [Concomitant]
     Active Substance: SUFENTANIL
     Dates: start: 20241209, end: 20241217
  32. SUFENTANIL [Concomitant]
     Active Substance: SUFENTANIL
     Dates: start: 20241222, end: 20250106
  33. ATRACURIUM [Concomitant]
     Active Substance: ATRACURIUM
     Dates: start: 20241222, end: 20241223

REACTIONS (1)
  - Rhabdomyolysis [Fatal]

NARRATIVE: CASE EVENT DATE: 20241202
